FAERS Safety Report 15959071 (Version 1)
Quarter: 2019Q1

REPORT INFORMATION
  Report Type: Report from Study
  Country: PR (occurrence: PR)
  Receive Date: 20190214
  Receipt Date: 20190214
  Transmission Date: 20190417
  Serious: Yes (Other)
  Sender: FDA-Public Use
  Company Number: PR-BRISTOL-MYERS SQUIBB COMPANY-BMS-2019-014702

PATIENT
  Sex: Male
  Weight: 72.57 kg

DRUGS (1)
  1. APIXABAN [Suspect]
     Active Substance: APIXABAN
     Indication: CEREBROVASCULAR ACCIDENT PROPHYLAXIS
     Dosage: 2.5 MG, BID
     Route: 048
     Dates: start: 20180508

REACTIONS (5)
  - Vein disorder [Unknown]
  - Arthropathy [Unknown]
  - Memory impairment [Unknown]
  - Product dose omission [Unknown]
  - Tonsillar disorder [Unknown]
